FAERS Safety Report 19802880 (Version 2)
Quarter: 2021Q4

REPORT INFORMATION
  Report Type: Spontaneous
  Country: JP (occurrence: JP)
  Receive Date: 20210908
  Receipt Date: 20211029
  Transmission Date: 20220303
  Serious: Yes (Hospitalization, Other)
  Sender: FDA-Public Use
  Company Number: JP-GLAXOSMITHKLINE-JP2021JPN187935

PATIENT
  Age: 46 Year
  Sex: Female
  Weight: 48 kg

DRUGS (12)
  1. BENLYSTA [Suspect]
     Active Substance: BELIMUMAB
     Indication: Hypocomplementaemia
     Dosage: 200 MG, WE
     Route: 058
     Dates: start: 20200804
  2. BENLYSTA [Suspect]
     Active Substance: BELIMUMAB
     Indication: Malaise
  3. PREDONINE [Concomitant]
     Active Substance: PREDNISOLONE
     Dosage: 5 MG, QD
  4. ASAHI KASEI PREDNISOLONE TABLETS [Concomitant]
     Dosage: 1 MG, QD
  5. PROGRAF [Concomitant]
     Active Substance: TACROLIMUS
     Dosage: 3 MG, QD
  6. MYCOPHENOLATE MOFETIL [Concomitant]
     Active Substance: MYCOPHENOLATE MOFETIL
     Dosage: 500 MG, BID
  7. PLAQUENIL TABLETS (HYDROXYCHLOROQUINE SULFATE) [Concomitant]
  8. NEXIUM [Concomitant]
     Active Substance: ESOMEPRAZOLE MAGNESIUM
     Dosage: 10 MG, QD
  9. SULFAMETHOXAZOLE\TRIMETHOPRIM [Concomitant]
     Active Substance: SULFAMETHOXAZOLE\TRIMETHOPRIM
     Dosage: 1 DF, WE
  10. ACTONEL TABLETS [Concomitant]
     Dosage: 17.5 MG, WE
  11. ALFAROL CAPSULE [Concomitant]
     Dosage: 1 ?G, QD
  12. LOXOPROFEN SODIUM DIHYDRATE [Concomitant]
     Active Substance: LOXOPROFEN SODIUM DIHYDRATE
     Dosage: 100 MG, 1D

REACTIONS (1)
  - Brain neoplasm [Not Recovered/Not Resolved]

NARRATIVE: CASE EVENT DATE: 20210701
